FAERS Safety Report 4471886-X (Version None)
Quarter: 2004Q4

REPORT INFORMATION
  Report Type: 
  Country: None (occurrence: None)
  Receive Date: 20041006
  Receipt Date: 20040922
  Transmission Date: 20050328
  Serious: Yes (Life-Threatening, Other)
  Sender: FDA-Public Use
  Company Number: 2004-0007431

PATIENT
  Age: 50 Year
  Sex: Female
  Weight: 46.7205 kg

DRUGS (7)
  1. EMTRIVA [Suspect]
     Indication: HIV INFECTION
     Dosage: 200 MG, 1 IN 1 D, ORAL
     Route: 048
     Dates: start: 20031020, end: 20040528
  2. EMTRIVA [Suspect]
     Indication: HIV INFECTION
     Dosage: 200 MG, 1 IN 1 D, ORAL
     Route: 048
     Dates: start: 20040920
  3. VIREAD [Suspect]
     Indication: HIV INFECTION
     Dosage: 300 MG, 1 IN 1 D{ ORAL
     Route: 048
     Dates: start: 20031020, end: 20040528
  4. REYATAZ [Concomitant]
  5. NORVIR [Concomitant]
  6. BACTRIM DS [Concomitant]
  7. ELAVIL [Concomitant]

REACTIONS (4)
  - BLOOD BICARBONATE DECREASED [None]
  - BLOOD POTASSIUM DECREASED [None]
  - PROTEINURIA [None]
  - RENAL FAILURE ACUTE [None]
